FAERS Safety Report 10310215 (Version 2)
Quarter: 2014Q3

REPORT INFORMATION
  Report Type: Report from Study
  Country: CN (occurrence: None)
  Receive Date: 20140715
  Receipt Date: 20140821
  Transmission Date: 20150326
  Serious: Yes (Hospitalization)
  Sender: FDA-Public Use
  Company Number: 7304987

PATIENT
  Age: 53 Year
  Sex: Female

DRUGS (2)
  1. EUTHYROX 50 MCG [Suspect]
     Active Substance: LEVOTHYROXINE SODIUM
     Indication: THYROIDECTOMY
     Route: 048
     Dates: start: 201303, end: 201306
  2. AMOXICILLIN (AMOXICILLIN) [Concomitant]
     Active Substance: AMOXICILLIN

REACTIONS (5)
  - Hyperhidrosis [None]
  - Myalgia [None]
  - Chest discomfort [None]
  - Dyspnoea [None]
  - Muscular weakness [None]

NARRATIVE: CASE EVENT DATE: 201404
